FAERS Safety Report 5573933-0 (Version None)
Quarter: 2007Q4

REPORT INFORMATION
  Report Type: 
  Country: None (occurrence: None)
  Receive Date: 20071226
  Receipt Date: 20071212
  Transmission Date: 20080405
  Serious: Yes (Other)
  Sender: FDA-Public Use
  Company Number: US-GENENTECH-253227

PATIENT

DRUGS (2)
  1. RITUXAN [Suspect]
     Indication: NON-HODGKIN'S LYMPHOMA
     Dosage: 375 MG/M2, 1/WEEK
     Route: 042
  2. CPG 7909 [Suspect]
     Indication: NON-HODGKIN'S LYMPHOMA
     Dosage: 0.32 MG/KG, 1/WEEK
     Route: 042

REACTIONS (1)
  - INSOMNIA [None]
